FAERS Safety Report 15148799 (Version 1)
Quarter: 2020Q3

REPORT INFORMATION
  Report Type: Spontaneous
  Country: AU (occurrence: AU)
  Receive Date: 20180716
  Receipt Date: 20180716
  Transmission Date: 20201105
  Serious: Yes (Other)
  Sender: FDA-Public Use
  Company Number: IND-AU-009507513-1807AUS002693

PATIENT
  Age: 53 Year
  Sex: Male

DRUGS (6)
  1. PROGESTERONE. [Suspect]
     Active Substance: PROGESTERONE
     Indication: IRRITABILITY
     Dosage: UNK
     Route: 048
     Dates: start: 2011, end: 201506
  2. TELMISARTAN. [Concomitant]
     Active Substance: TELMISARTAN
     Dosage: UNK
  3. VITAMINS (UNSPECIFIED) [Concomitant]
     Active Substance: VITAMINS
     Dosage: UNK
  4. TESTOSTERONE UNDECANOATE. [Suspect]
     Active Substance: TESTOSTERONE UNDECANOATE
     Indication: IRRITABILITY
     Dosage: UNK
     Route: 048
     Dates: start: 2011, end: 201506
  5. DHEA [Suspect]
     Active Substance: PRASTERONE
     Indication: IRRITABILITY
     Dosage: UNK
     Route: 048
     Dates: start: 2011, end: 201506
  6. MELATONIN [Concomitant]
     Active Substance: MELATONIN
     Dosage: UNK

REACTIONS (5)
  - Hypercoagulation [Unknown]
  - Thrombosis [Recovered/Resolved]
  - Progesterone increased [Unknown]
  - Oestradiol increased [Unknown]
  - Blood testosterone free increased [Unknown]
